FAERS Safety Report 6722879-0 (Version None)
Quarter: 2010Q2

REPORT INFORMATION
  Report Type: 
  Country: None (occurrence: None)
  Receive Date: 20100512
  Receipt Date: 20100512
  Transmission Date: 20101027
  Serious: No
  Sender: FDA-Public Use
  Company Number: None

PATIENT
  Age: 51 Year
  Sex: Male
  Weight: 86.8 kg

DRUGS (1)
  1. PRASUGREL [Suspect]
     Indication: CORONARY ARTERIAL STENT INSERTION
     Dosage: 10 MG EVERY DAY PO
     Route: 048
     Dates: start: 20100501, end: 20100504

REACTIONS (1)
  - RASH [None]
